FAERS Safety Report 5636786-8 (Version None)
Quarter: 2008Q1

REPORT INFORMATION
  Report Type: 
  Country: None (occurrence: None)
  Receive Date: 20080219
  Receipt Date: 20080219
  Transmission Date: 20080703
  Serious: Yes (Hospitalization)
  Sender: FDA-Public Use
  Company Number: None

PATIENT
  Age: 62 Year
  Sex: Male

DRUGS (1)
  1. MORPHINE [Suspect]
     Dosage: 300MG BID PO
     Route: 048
     Dates: start: 20070425, end: 20070615

REACTIONS (5)
  - ABDOMINAL PAIN [None]
  - CONSTIPATION [None]
  - NAUSEA [None]
  - OBSTRUCTION [None]
  - VOMITING [None]
